FAERS Safety Report 24848732 (Version 1)
Quarter: 2025Q1

REPORT INFORMATION
  Report Type: Spontaneous
  Country: US (occurrence: US)
  Receive Date: 20250116
  Receipt Date: 20250116
  Transmission Date: 20250408
  Serious: Yes (Hospitalization)
  Sender: PHARMAESSENTIA
  Company Number: US-PHARMAESSENTIA-US-2025-PEC-005633

PATIENT
  Sex: Female

DRUGS (2)
  1. BESREMI [Suspect]
     Active Substance: ROPEGINTERFERON ALFA-2B-NJFT
     Indication: Polycythaemia vera
     Dosage: 50 MCG, Q2W
     Route: 065
     Dates: start: 20231208
  2. BESREMI [Suspect]
     Active Substance: ROPEGINTERFERON ALFA-2B-NJFT
     Route: 065

REACTIONS (2)
  - Illness [Recovering/Resolving]
  - Incorrect dose administered [Unknown]
